FAERS Safety Report 7962400-2 (Version None)
Quarter: 2011Q4

REPORT INFORMATION
  Report Type: 
  Country: None (occurrence: None)
  Receive Date: 20111206
  Receipt Date: 20111119
  Transmission Date: 20120403
  Serious: Yes (Hospitalization)
  Sender: FDA-Public Use
  Company Number: UTC-012596

PATIENT
  Age: 37 Year
  Sex: Female
  Weight: 47.7 kg

DRUGS (3)
  1. COUMADIN [Concomitant]
  2. TRACLEER [Concomitant]
  3. REMODULIN [Suspect]
     Indication: COR PULMONALE CHRONIC
     Dosage: 34.56 UG/KG (0.024 UG/KG,1 IN 1 MIN),SUBCUTANEOUS
     Route: 058
     Dates: start: 20061214

REACTIONS (2)
  - DEVICE RELATED INFECTION [None]
  - URINARY TRACT INFECTION [None]
